FAERS Safety Report 9190023 (Version 1)
Quarter: 2013Q1

REPORT INFORMATION
  Report Type: Spontaneous
  Country: US (occurrence: None)
  Receive Date: 20130322
  Receipt Date: 20130322
  Transmission Date: 20140127
  Serious: No
  Sender: FDA-Public Use
  Company Number: None

PATIENT
  Age: 58 Year
  Sex: Male
  Weight: 93 kg

DRUGS (32)
  1. DAPSONE [Suspect]
     Route: 048
     Dates: start: 20120531, end: 20121005
  2. CALCITONIN [Concomitant]
  3. AZATHIOPRINE [Concomitant]
  4. CYCLOSPORINE [Concomitant]
  5. ERGOCALCIFEROL [Concomitant]
  6. FERROUS SULFATE [Concomitant]
  7. GABAPENTIN [Concomitant]
  8. ALBUTEROL\IPRATROPIUM [Suspect]
  9. MAGNESIUM OXIDE [Concomitant]
  10. OMEPRAZOLE [Concomitant]
  11. PREDNISONE [Concomitant]
  12. SERTRALINE [Concomitant]
  13. VANCOMYCIN [Concomitant]
  14. ZOSYN [Concomitant]
  15. DARBOPOETIN [Concomitant]
  16. THIAMINE [Concomitant]
  17. FOLIC ACID [Concomitant]
  18. MULTIVITAMIN [Concomitant]
  19. OSELTAMIVIR [Concomitant]
  20. OXYCODONE [Concomitant]
  21. GANCICLOVIR [Concomitant]
  22. WARFARIN [Concomitant]
  23. MORPHINE [Concomitant]
  24. TIOTROPIUM [Concomitant]
  25. FLUTICASONE/SALMETEROL [Concomitant]
  26. AZITHROMYCIN [Concomitant]
  27. METHOCARBAMOL [Concomitant]
  28. LORAZEPAM [Concomitant]
  29. ACETAMINOPHEN [Concomitant]
  30. ALBUTEROL [Concomitant]
  31. POTASSIUM [Concomitant]
  32. SODIUM PHOSPHATE [Concomitant]

REACTIONS (6)
  - Throat irritation [None]
  - Cytomegalovirus viraemia [None]
  - Pyrexia [None]
  - Respiratory rate increased [None]
  - Heart rate increased [None]
  - Blood pressure systolic decreased [None]
